FAERS Safety Report 21709857 (Version 1)
Quarter: 2022Q4

REPORT INFORMATION
  Report Type: Spontaneous
  Country: TR (occurrence: TR)
  Receive Date: 20221210
  Receipt Date: 20221210
  Transmission Date: 20230113
  Serious: Yes (Hospitalization, Other)
  Sender: FDA-Public Use
  Company Number: TR-002147023-NVSC2022TR285358

PATIENT
  Age: 48 Year
  Sex: Male

DRUGS (1)
  1. ILARIS [Suspect]
     Active Substance: CANAKINUMAB
     Indication: Familial amyloidosis
     Dosage: UNK, QMO
     Route: 065
     Dates: start: 2018

REACTIONS (3)
  - Familial amyloidosis [Unknown]
  - Product supply issue [Unknown]
  - Off label use [Unknown]
